FAERS Safety Report 9907914 (Version 1)
Quarter: 2014Q1

REPORT INFORMATION
  Report Type: Spontaneous
  Country: US (occurrence: US)
  Receive Date: 20140219
  Receipt Date: 20140219
  Transmission Date: 20141002
  Serious: No
  Sender: FDA-Public Use
  Company Number: US-BIOGENIDEC-2014BI015249

PATIENT
  Sex: Female
  Weight: 61 kg

DRUGS (16)
  1. TECFIDERA [Suspect]
     Indication: MULTIPLE SCLEROSIS
     Dates: end: 201311
  2. TYSABRI [Concomitant]
     Indication: MULTIPLE SCLEROSIS
     Route: 042
     Dates: start: 20090507, end: 20090915
  3. TYSABRI [Concomitant]
     Indication: MULTIPLE SCLEROSIS
     Route: 042
     Dates: start: 20120810, end: 20130607
  4. XANAX [Concomitant]
     Indication: SLEEP DISORDER
  5. LIORESAL [Concomitant]
     Route: 048
  6. FLEXERIL [Concomitant]
  7. LEXAPRO [Concomitant]
     Route: 048
  8. LASIX [Concomitant]
     Route: 048
  9. LAMICTAL [Concomitant]
  10. PROVIGIL [Concomitant]
  11. ESTROVEN [Concomitant]
     Route: 048
  12. KDUR [Concomitant]
     Route: 048
  13. KLORCON [Concomitant]
     Route: 048
  14. MIRAPEX [Concomitant]
     Indication: RESTLESS LEGS SYNDROME
     Route: 048
  15. PROMETRIUM [Concomitant]
  16. FLOMAX [Concomitant]
     Route: 048

REACTIONS (9)
  - Migraine [Unknown]
  - Central nervous system lesion [Unknown]
  - Urinary retention [Unknown]
  - Chest pain [Unknown]
  - Balance disorder [Unknown]
  - Asthenia [Unknown]
  - Weight decreased [Unknown]
  - Nausea [Unknown]
  - Vomiting [Unknown]
